FAERS Safety Report 7752370-4 (Version None)
Quarter: 2011Q3

REPORT INFORMATION
  Report Type: 
  Country: None (occurrence: None)
  Receive Date: 20110913
  Receipt Date: 20110830
  Transmission Date: 20111222
  Serious: Yes (Hospitalization, Disabling, Other)
  Sender: FDA-Public Use
  Company Number: 2009SP017681

PATIENT
  Age: 41 Year
  Sex: Female
  Weight: 47.6277 kg

DRUGS (9)
  1. NUVARING [Suspect]
     Indication: MENSTRUAL CYCLE MANAGEMENT
     Dosage: 1 DF'; QM; VAG
     Route: 067
     Dates: start: 20040901
  2. NUVARING [Suspect]
     Indication: MENSTRUAL CYCLE MANAGEMENT
     Dosage: 1 DF'; QM; VAG
     Route: 067
     Dates: start: 20030901
  3. NUVARING [Suspect]
     Indication: MENSTRUAL CYCLE MANAGEMENT
     Dosage: 1 DF'; QM; VAG
     Route: 067
     Dates: start: 20050101
  4. NASACORT [Concomitant]
  5. TYLENOL-500 [Concomitant]
  6. PARAFON FORTE [Concomitant]
  7. TOPAMAX [Concomitant]
  8. AMITRIPTYLINE HCL [Concomitant]
  9. MAXALT [Concomitant]

REACTIONS (23)
  - CEREBROVASCULAR ACCIDENT [None]
  - HAEMORRHAGE INTRACRANIAL [None]
  - PARALYSIS [None]
  - APRAXIA [None]
  - SINUSITIS [None]
  - GENERAL PHYSICAL HEALTH DETERIORATION [None]
  - COMPLEX REGIONAL PAIN SYNDROME [None]
  - ABDOMINAL PAIN [None]
  - DYSGEUSIA [None]
  - MIGRAINE [None]
  - GRAND MAL CONVULSION [None]
  - OSTEOPOROSIS [None]
  - CEREBRAL INFARCTION [None]
  - PELVIC PAIN [None]
  - HUMERUS FRACTURE [None]
  - CEREBRAL VENOUS THROMBOSIS [None]
  - CEREBRAL HAEMORRHAGE [None]
  - HEMIPARESIS [None]
  - CONVULSION [None]
  - UPPER LIMB FRACTURE [None]
  - UNRESPONSIVE TO STIMULI [None]
  - NASAL SEPTUM DEVIATION [None]
  - FALL [None]
